FAERS Safety Report 6682579-2 (Version None)
Quarter: 2010Q2

REPORT INFORMATION
  Report Type: 
  Country: None (occurrence: None)
  Receive Date: 20100415
  Receipt Date: 20100402
  Transmission Date: 20101027
  Serious: Yes (Hospitalization, Other)
  Sender: FDA-Public Use
  Company Number: PHHY2010US20878

PATIENT
  Sex: Female

DRUGS (9)
  1. EXJADE [Suspect]
     Dosage: 1500 MG DAILY
     Route: 048
  2. AMOXICILLIN TRIHYDRATE [Concomitant]
     Dosage: ONE CAPSULE  Q8H
     Route: 048
  3. FOLATE SODIUM [Concomitant]
     Dosage: 1 DF, QD
     Route: 048
  4. HYDROMORPHONE HCL [Concomitant]
     Route: 048
  5. MULTI-VITAMINS [Concomitant]
     Dosage: 1 DF, QD
     Route: 048
  6. NEXIUM [Concomitant]
     Dosage: 1 DF, QD
     Route: 048
  7. PROMETHAZINE [Concomitant]
     Indication: NAUSEA
     Dosage: ONE TAB, Q4H PRN
     Route: 048
  8. VITAMIN B COMPLEX CAP [Concomitant]
     Dosage: 1 DF, QD
     Route: 048
  9. TYLENOL-500 [Concomitant]
     Dosage: TWO CAPS PRN
     Route: 048

REACTIONS (8)
  - ARTHRALGIA [None]
  - BACK PAIN [None]
  - BLOOD BILIRUBIN INCREASED [None]
  - DRUG EXPOSURE DURING PREGNANCY [None]
  - INTRA-UTERINE DEATH [None]
  - PAIN [None]
  - SICKLE CELL ANAEMIA WITH CRISIS [None]
  - UTERINE DILATION AND CURETTAGE [None]
